FAERS Safety Report 26192800 (Version 1)
Quarter: 2025Q4

REPORT INFORMATION
  Report Type: Spontaneous
  Country: JP (occurrence: JP)
  Receive Date: 20251223
  Receipt Date: 20251223
  Transmission Date: 20260118
  Serious: Yes (Hospitalization)
  Sender: PFIZER
  Company Number: JP-PFIZER INC-PV202500148126

PATIENT
  Age: 75 Year
  Sex: Male
  Weight: 48.4 kg

DRUGS (5)
  1. MINOCYCLINE [Suspect]
     Active Substance: MINOCYCLINE HYDROCHLORIDE
     Indication: Osteomyelitis
     Dosage: UNK, DAILY
     Route: 048
     Dates: start: 20250526, end: 20250616
  2. CLINDAMYCIN [Suspect]
     Active Substance: CLINDAMYCIN
     Indication: Osteomyelitis
     Dosage: UNK UNK, DAILY
     Route: 048
     Dates: start: 20250519, end: 20250525
  3. CARTEOLOL HYDROCHLORIDE\LATANOPROST [Concomitant]
     Active Substance: CARTEOLOL HYDROCHLORIDE\LATANOPROST
     Dosage: UNK
     Route: 047
  4. BRIMONIDINE TARTRATE\BRINZOLAMIDE [Concomitant]
     Active Substance: BRIMONIDINE TARTRATE\BRINZOLAMIDE
     Dosage: UNK
     Route: 047
  5. FEBUXOSTAT SAWAI [Concomitant]
     Dosage: UNK
     Route: 048

REACTIONS (8)
  - Cardiac failure [Unknown]
  - Pulmonary toxicity [Unknown]
  - Dyspnoea exertional [Unknown]
  - Condition aggravated [Unknown]
  - Oxygen saturation decreased [Recovering/Resolving]
  - Eosinophilia [Recovered/Resolved]
  - Pneumonitis [Recovering/Resolving]
  - Off label use [Unknown]

NARRATIVE: CASE EVENT DATE: 20250519
